FAERS Safety Report 4935600-3 (Version None)
Quarter: 2006Q1

REPORT INFORMATION
  Report Type: 
  Country: None (occurrence: None)
  Receive Date: 20060307
  Receipt Date: 20051123
  Transmission Date: 20060701
  Serious: Yes (Hospitalization)
  Sender: FDA-Public Use
  Company Number: US-SANOFI-SYNTHELABO-D01200507943

PATIENT
  Sex: Female
  Weight: 66 kg

DRUGS (6)
  1. ZOLPIDEM-MR [Suspect]
     Indication: INSOMNIA
     Route: 048
     Dates: start: 20050531, end: 20051115
  2. ZOCOR [Concomitant]
     Indication: BLOOD CHOLESTEROL
     Dosage: 20 MG
     Route: 065
     Dates: start: 19950101
  3. CATAPRES [Concomitant]
     Indication: HYPERTENSION
     Dosage: 2 MG
     Route: 065
     Dates: start: 20030601, end: 20051030
  4. INDERAL [Concomitant]
     Indication: HYPERTENSION
     Dosage: 3 MG
     Route: 065
     Dates: start: 19950101, end: 20051101
  5. FOSAMAX [Concomitant]
     Indication: OSTEOPOROSIS
     Dosage: 10 MG
     Route: 065
     Dates: start: 19950101
  6. XYLOCITIN [Concomitant]
     Indication: GLAUCOMA
     Dosage: 2 GTT
     Route: 065
     Dates: start: 19950101

REACTIONS (7)
  - ANXIETY [None]
  - BLOOD PRESSURE DIASTOLIC INCREASED [None]
  - COORDINATION ABNORMAL [None]
  - INSOMNIA [None]
  - ORTHOSTATIC HYPOTENSION [None]
  - VISUAL DISTURBANCE [None]
  - WEIGHT DECREASED [None]
